FAERS Safety Report 7559774-3 (Version None)
Quarter: 2011Q2

REPORT INFORMATION
  Report Type: 
  Country: None (occurrence: None)
  Receive Date: 20110621
  Receipt Date: 20110610
  Transmission Date: 20111010
  Serious: Yes (Hospitalization)
  Sender: FDA-Public Use
  Company Number: US-ROCHE-782409

PATIENT
  Sex: Male
  Weight: 91.1 kg

DRUGS (14)
  1. ASCORBIC ACID [Concomitant]
  2. CAPECITABINE [Suspect]
     Indication: OESOPHAGEAL CANCER METASTATIC
     Dosage: FREQUENCY 2 WEEKS 1 OFF.
     Route: 065
     Dates: start: 20110503, end: 20110607
  3. COMPAZINE [Concomitant]
  4. METOPROLOL TARTRATE [Concomitant]
  5. LOVASTATIN [Concomitant]
  6. COLACE [Concomitant]
  7. M.V.I. [Concomitant]
  8. ASPIRIN [Concomitant]
  9. BEVACIZUMAB [Suspect]
     Indication: OESOPHAGEAL CANCER METASTATIC
     Route: 065
     Dates: start: 20110503, end: 20110524
  10. TRASTUZUMAB [Suspect]
     Indication: OESOPHAGEAL CANCER METASTATIC
     Route: 065
     Dates: start: 20110426, end: 20110524
  11. OXALIPLATIN [Suspect]
     Indication: OESOPHAGEAL CANCER METASTATIC
     Route: 065
     Dates: start: 20110503, end: 20110503
  12. OMEPRAZOLE [Concomitant]
  13. VITAMIN B-12 [Concomitant]
  14. LOMOTIL [Concomitant]

REACTIONS (3)
  - DIARRHOEA [None]
  - COLITIS [None]
  - DEHYDRATION [None]
